FAERS Safety Report 24977271 (Version 1)
Quarter: 2025Q1

REPORT INFORMATION
  Report Type: Spontaneous
  Country: FR (occurrence: FR)
  Receive Date: 20250217
  Receipt Date: 20250217
  Transmission Date: 20250408
  Serious: Yes (Hospitalization)
  Sender: CHEPLAPHARM
  Company Number: None

PATIENT
  Age: 15 Year
  Sex: Female
  Weight: 57 kg

DRUGS (4)
  1. OLANZAPINE [Suspect]
     Active Substance: OLANZAPINE
     Indication: Anorexia and bulimia syndrome
     Dosage: DAILY DOSE: 7.5 MILLIGRAM
     Dates: start: 20241017
  2. FLUOXETINE HYDROCHLORIDE [Suspect]
     Active Substance: FLUOXETINE HYDROCHLORIDE
     Indication: Anorexia and bulimia syndrome
     Dosage: DAILY DOSE: 20 MILLIGRAM
     Dates: start: 20241017
  3. FLUOXETINE HYDROCHLORIDE [Suspect]
     Active Substance: FLUOXETINE HYDROCHLORIDE
     Indication: Anorexia and bulimia syndrome
     Dosage: DAILY DOSE: 30 MILLIGRAM
     Dates: start: 20241216
  4. MELATONIN [Concomitant]
     Active Substance: MELATONIN
     Indication: Sleep disorder
     Dosage: DAILY DOSE: 10 MILLIGRAM

REACTIONS (3)
  - Venous thrombosis limb [Recovered/Resolved]
  - Ecchymosis [Not Recovered/Not Resolved]
  - Off label use [Not Recovered/Not Resolved]

NARRATIVE: CASE EVENT DATE: 20241017
